FAERS Safety Report 7902854-0 (Version None)
Quarter: 2011Q4

REPORT INFORMATION
  Report Type: 
  Country: None (occurrence: None)
  Receive Date: 20111107
  Receipt Date: 20111021
  Transmission Date: 20120403
  Serious: Yes (Hospitalization)
  Sender: FDA-Public Use
  Company Number: LEO-2011-00915

PATIENT
  Age: 24 Year
  Sex: Female
  Weight: 51 kg

DRUGS (6)
  1. CINACALCET HYDROCHLORIDE [Concomitant]
  2. INNOHEP [Suspect]
     Indication: HAEMODIALYSIS
     Dosage: (2500 IU)
     Dates: start: 20110920, end: 20110920
  3. ONE-ALPHA (ALFACALCIDOL) [Concomitant]
  4. LISINOPRIL [Concomitant]
  5. LANSOPRAZOLE [Concomitant]
  6. SEVELAMER (SEVELAMER) [Concomitant]

REACTIONS (6)
  - PRURITUS GENERALISED [None]
  - DYSPNOEA [None]
  - URTICARIA [None]
  - BACK PAIN [None]
  - VOMITING [None]
  - BLOOD AMYLASE INCREASED [None]
